FAERS Safety Report 12650919 (Version 1)
Quarter: 2016Q3

REPORT INFORMATION
  Report Type: Spontaneous
  Country: US (occurrence: US)
  Receive Date: 20160815
  Receipt Date: 20160815
  Transmission Date: 20161109
  Serious: No
  Sender: FDA-Public Use
  Company Number: US-JAZZ-2016-US-005004

PATIENT
  Sex: Female

DRUGS (15)
  1. BENADRYL ALLERGY [Concomitant]
     Active Substance: DIPHENHYDRAMINE HYDROCHLORIDE
  2. PROMETHAZINE [Concomitant]
     Active Substance: PROMETHAZINE\PROMETHAZINE HYDROCHLORIDE
     Dosage: PRN
  3. PREMARIN [Concomitant]
     Active Substance: ESTROGENS, CONJUGATED
     Dosage: ONCE DAILY
  4. TOPAMAX [Concomitant]
     Active Substance: TOPIRAMATE
  5. ATORVASTATIN [Concomitant]
     Active Substance: ATORVASTATIN
     Dosage: ONCE DAILY
  6. FENOFIBRATE. [Concomitant]
     Active Substance: FENOFIBRATE
  7. XYREM [Suspect]
     Active Substance: SODIUM OXYBATE
     Dosage: 3.75 G, BID, MOST DAT GET ONLY 1 DOSE
     Route: 048
  8. OMEPRAZOLE. [Concomitant]
     Active Substance: OMEPRAZOLE
     Dosage: ONCE DAILY
  9. PROVIGIL [Concomitant]
     Active Substance: MODAFINIL
     Dosage: DAILY
  10. FIORICET [Concomitant]
     Active Substance: ACETAMINOPHEN\BUTALBITAL\CAFFEINE
  11. FISH OIL [Concomitant]
     Active Substance: FISH OIL
     Dosage: ONCE DAILY
  12. ROPINIROLE HCL [Concomitant]
     Active Substance: ROPINIROLE HYDROCHLORIDE
     Dosage: 2 ONCE DAILY
  13. VITAMIN D3 [Concomitant]
     Active Substance: CHOLECALCIFEROL
     Dosage: ONCE DAILY
  14. XYREM [Suspect]
     Active Substance: SODIUM OXYBATE
     Indication: NARCOLEPSY
     Dosage: 2.25 G, BID
     Route: 048
     Dates: start: 201505, end: 201507
  15. XYREM [Suspect]
     Active Substance: SODIUM OXYBATE
     Dosage: 3 G, BID
     Route: 048

REACTIONS (1)
  - Drug dose omission [Unknown]
